FAERS Safety Report 4886729-X (Version None)
Quarter: 2006Q1

REPORT INFORMATION
  Report Type: 
  Country: None (occurrence: None)
  Receive Date: 20060119
  Receipt Date: 20060111
  Transmission Date: 20060701
  Serious: Yes (Death)
  Sender: FDA-Public Use
  Company Number: 8008254

PATIENT
  Age: 20 Year
  Sex: Male
  Weight: 78 kg

DRUGS (2)
  1. KEPPRA [Suspect]
     Dosage: 500 MG 2/D PO
     Route: 048
     Dates: start: 20040121
  2. LAMOTRIGINE [Suspect]
     Indication: EPILEPSY
     Dosage: 225 MG 2/D PO
     Route: 048
     Dates: start: 20021025

REACTIONS (5)
  - FALL [None]
  - MYOCARDIAL ISCHAEMIA [None]
  - MYOCARDITIS [None]
  - PULMONARY CONGESTION [None]
  - UPPER RESPIRATORY TRACT CONGESTION [None]
